FAERS Safety Report 20040088 (Version 1)
Quarter: 2021Q4

REPORT INFORMATION
  Report Type: Report from Study
  Country: MX (occurrence: MX)
  Receive Date: 20211106
  Receipt Date: 20211106
  Transmission Date: 20220303
  Serious: Yes (Other)
  Sender: FDA-Public Use
  Company Number: MX-NOVARTISPH-NVSC2021MX254056

PATIENT
  Age: 76 Year
  Sex: Female
  Weight: 61 kg

DRUGS (1)
  1. DIOVAN [Suspect]
     Active Substance: VALSARTAN
     Indication: Blood pressure increased
     Dosage: 0.5 DF, (80 MG) BID
     Route: 048

REACTIONS (4)
  - Infarction [Not Recovered/Not Resolved]
  - Weight decreased [Not Recovered/Not Resolved]
  - Blood pressure abnormal [Not Recovered/Not Resolved]
  - Inappropriate schedule of product administration [Unknown]

NARRATIVE: CASE EVENT DATE: 20210725
